FAERS Safety Report 10601628 (Version 1)
Quarter: 2014Q4

REPORT INFORMATION
  Report Type: Spontaneous
  Country: CA (occurrence: CA)
  Receive Date: 20141124
  Receipt Date: 20141124
  Transmission Date: 20150529
  Serious: Yes (Other)
  Sender: FDA-Public Use
  Company Number: CA-PFIZER INC-2014318035

PATIENT
  Age: 66 Year
  Sex: Male

DRUGS (6)
  1. SANDOSTATIN LAR DEPOT [Suspect]
     Active Substance: OCTREOTIDE ACETATE
     Dosage: 30 MG, MONTHLY
     Route: 030
  2. AFINITOR [Suspect]
     Active Substance: EVEROLIMUS
     Dosage: 10 MG, 1X/DAY
     Route: 048
  3. SANDOSTATIN LAR DEPOT [Suspect]
     Active Substance: OCTREOTIDE ACETATE
     Dosage: 20 MG, MONTHLY
     Route: 030
  4. SANDOSTATIN LAR DEPOT [Suspect]
     Active Substance: OCTREOTIDE ACETATE
     Dosage: 30 MG, MONTHLY
     Route: 030
  5. SUTENT [Suspect]
     Active Substance: SUNITINIB MALATE
     Dosage: 12.5 MG, UNK
  6. SUTENT [Suspect]
     Active Substance: SUNITINIB MALATE
     Dosage: 25.0 MG, UNK

REACTIONS (22)
  - Pulse abnormal [Unknown]
  - Syncope [Unknown]
  - Psychomotor hyperactivity [Unknown]
  - White blood cell count decreased [Unknown]
  - Abdominal pain [Unknown]
  - Chills [Unknown]
  - Skin disorder [Unknown]
  - Yellow skin [Unknown]
  - Prostate cancer stage I [Unknown]
  - Blood pressure decreased [Unknown]
  - Second primary malignancy [Unknown]
  - Anxiety [Unknown]
  - Blood bilirubin [Unknown]
  - Feeling abnormal [Unknown]
  - Flushing [Unknown]
  - Tremor [Unknown]
  - Abdominal distension [Unknown]
  - Hypertension [Unknown]
  - Blood glucose increased [Unknown]
  - Dizziness [Unknown]
  - Hyperhidrosis [Unknown]
  - Vision blurred [Unknown]
